FAERS Safety Report 7702040-3 (Version None)
Quarter: 2011Q3

REPORT INFORMATION
  Report Type: 
  Country: None (occurrence: None)
  Receive Date: 20110822
  Receipt Date: 20110817
  Transmission Date: 20111222
  Serious: Yes (Life-Threatening)
  Sender: FDA-Public Use
  Company Number: FR-PFIZER INC-2011188994

PATIENT
  Age: 53 Year
  Sex: Male

DRUGS (3)
  1. GEMTUZUMAB OZOGAMICIN [Suspect]
     Indication: ACUTE LEUKAEMIA
     Dosage: 11 MG, 1X/DAY
     Route: 042
     Dates: start: 20090206, end: 20090206
  2. CYTARABINE [Suspect]
     Indication: ACUTE MYELOID LEUKAEMIA
     Dosage: 18000 MG, UNK
     Route: 042
     Dates: start: 20090203, end: 20090207
  3. MITOXANTRONE HYDROCHLORIDE [Concomitant]
     Indication: ACUTE MYELOID LEUKAEMIA
     Dosage: 21.5 MG, UNK
     Route: 042
     Dates: start: 20090203, end: 20090204

REACTIONS (3)
  - JAUNDICE [None]
  - CYTOLYTIC HEPATITIS [None]
  - HEPATITIS [None]
